FAERS Safety Report 16733639 (Version 2)
Quarter: 2019Q3

REPORT INFORMATION
  Report Type: Spontaneous
  Country: CZ (occurrence: CZ)
  Receive Date: 20190823
  Receipt Date: 20190903
  Transmission Date: 20191005
  Serious: Yes (Other)
  Sender: FDA-Public Use
  Company Number: CZ-BEH-2019105801

PATIENT
  Age: 20 Year
  Sex: Male

DRUGS (2)
  1. HUMAN FACTOR VIII (INN) [Suspect]
     Active Substance: ANTIHEMOPHILIC FACTOR HUMAN
     Indication: HAEMOPHILIA
     Dosage: 60 INTERNATIONAL UNIT/KILOGRAM EVERY 8 HOURS
     Route: 065
  2. TRANEXAMIC ACID. [Suspect]
     Active Substance: TRANEXAMIC ACID
     Route: 042

REACTIONS (1)
  - Peripheral artery thrombosis [Recovered/Resolved]
